FAERS Safety Report 14608325 (Version 2)
Quarter: 2018Q3

REPORT INFORMATION
  Report Type: Spontaneous
  Country: DE (occurrence: DE)
  Receive Date: 20180307
  Receipt Date: 20180802
  Transmission Date: 20181010
  Serious: Yes (Other)
  Sender: FDA-Public Use
  Company Number: DE-TEVA-2018-DE-862959

PATIENT
  Sex: Male
  Weight: 68.8 kg

DRUGS (12)
  1. DOCETAXEL. [Suspect]
     Active Substance: DOCETAXEL
     Indication: ADENOCARCINOMA GASTRIC
     Dosage: LAST ADMINISTRATION BEFORE ONSET: 28?NOV?2016
     Route: 042
     Dates: start: 20161031, end: 20161128
  2. DOCETAXEL. [Suspect]
     Active Substance: DOCETAXEL
     Route: 042
     Dates: start: 20161128, end: 20161128
  3. 5?FU MEDAC [Suspect]
     Active Substance: FLUOROURACIL
     Route: 042
     Dates: start: 20161128, end: 20161128
  4. 5?FU MEDAC [Suspect]
     Active Substance: FLUOROURACIL
     Route: 042
     Dates: start: 20161031, end: 20161128
  5. ONCOFOLIC [Concomitant]
     Active Substance: FOLATE SODIUM
     Route: 042
     Dates: start: 20161128, end: 20161128
  6. OXALIPLATIN. [Concomitant]
     Active Substance: OXALIPLATIN
     Indication: ADENOCARCINOMA GASTRIC
     Dosage: LAST ADMINISTRATION BEFORE ONSET: 28?NOV?2016
     Route: 042
     Dates: start: 20161031, end: 20161128
  7. ONCOFOLIC [Concomitant]
     Active Substance: FOLATE SODIUM
     Route: 042
     Dates: start: 20161031, end: 20161031
  8. 5?FU MEDAC [Suspect]
     Active Substance: FLUOROURACIL
     Indication: ADENOCARCINOMA GASTRIC
     Dosage: LAST ADMINISTRATION BEFORE ONSET: 28?NOV?2016
     Route: 042
     Dates: start: 20161031, end: 20161128
  9. OXALIPLATIN. [Concomitant]
     Active Substance: OXALIPLATIN
     Route: 042
     Dates: start: 20161031, end: 20161031
  10. ONCOFOLIC [Concomitant]
     Active Substance: FOLATE SODIUM
     Indication: ADENOCARCINOMA GASTRIC
     Dosage: LAST ADMINISTRATION BEFORE ONSET: 28?NOV?2016
     Route: 042
     Dates: start: 20161031, end: 20161128
  11. OXALIPLATIN. [Concomitant]
     Active Substance: OXALIPLATIN
     Route: 042
     Dates: start: 20161128, end: 20161128
  12. DOCETAXEL. [Suspect]
     Active Substance: DOCETAXEL
     Route: 042
     Dates: start: 20161031, end: 20161031

REACTIONS (1)
  - White blood cell count decreased [Recovered/Resolved]

NARRATIVE: CASE EVENT DATE: 20161205
